FAERS Safety Report 8862188 (Version 4)
Quarter: 2013Q1

REPORT INFORMATION
  Report Type: Spontaneous
  Country: US (occurrence: US)
  Receive Date: 20121026
  Receipt Date: 20130206
  Transmission Date: 20140127
  Serious: No
  Sender: FDA-Public Use
  Company Number: US-TEVA-366150USA

PATIENT
  Sex: Female
  Weight: 37.23 kg

DRUGS (9)
  1. FENTORA [Suspect]
     Indication: CROHN^S DISEASE
     Route: 002
     Dates: start: 2012
  2. FENTORA [Suspect]
     Indication: BREAKTHROUGH PAIN
     Route: 002
     Dates: start: 201211
  3. FENTORA [Suspect]
     Indication: ARTHRITIS
  4. ACTIQ [Suspect]
     Indication: BREAKTHROUGH PAIN
     Route: 002
  5. FLAGYL [Concomitant]
     Indication: CROHN^S DISEASE
  6. CIPRO [Concomitant]
     Indication: CROHN^S DISEASE
  7. NEXIUM [Concomitant]
     Indication: CROHN^S DISEASE
  8. PREDNISONE [Concomitant]
     Indication: CROHN^S DISEASE
  9. ADDERALL [Concomitant]

REACTIONS (7)
  - Drug ineffective [Not Recovered/Not Resolved]
  - Off label use [Unknown]
  - Decreased appetite [Not Recovered/Not Resolved]
  - Insomnia [Not Recovered/Not Resolved]
  - Pain [Not Recovered/Not Resolved]
  - Drug prescribing error [Unknown]
  - Medication overuse headache [Unknown]
